FAERS Safety Report 9879027 (Version 1)
Quarter: 2014Q1

REPORT INFORMATION
  Report Type: Spontaneous
  Country: US (occurrence: US)
  Receive Date: 20140206
  Receipt Date: 20140206
  Transmission Date: 20141002
  Serious: Yes (Other)
  Sender: FDA-Public Use
  Company Number: US-PFIZER INC-2014033778

PATIENT
  Age: 50 Year
  Sex: Male
  Weight: 67.1 kg

DRUGS (3)
  1. LYRICA [Suspect]
     Indication: FIBROMYALGIA
     Dosage: 500 MG (2CAPSULES 100MG IN MORNING, 2 CAPSULES 100MG IN AFTERNOON,1 CAPSULE 100MG AT NIGHT), DAILY
     Route: 048
  2. NORCO [Concomitant]
     Dosage: UNK
  3. ALLOPURINOL [Concomitant]
     Dosage: UNK

REACTIONS (1)
  - Neoplasm malignant [Not Recovered/Not Resolved]
